FAERS Safety Report 13279722 (Version 1)
Quarter: 2017Q1

REPORT INFORMATION
  Report Type: Report from Study
  Country: None (occurrence: US)
  Receive Date: 20170301
  Receipt Date: 20170301
  Transmission Date: 20170428
  Serious: Yes (Hospitalization, Other)
  Sender: FDA-Public Use
  Company Number: US-AMAG PHARMACEUTICALS, INC.-AMAG201600689

PATIENT
  Age: 0 Day
  Sex: Male
  Weight: .56 kg

DRUGS (1)
  1. MAKENA [Suspect]
     Active Substance: HYDROXYPROGESTERONE CAPROATE
     Indication: EXPOSURE DURING PREGNANCY
     Dosage: UNK
     Route: 065
     Dates: end: 20160408

REACTIONS (2)
  - Staphylococcus test positive [Unknown]
  - Premature baby [Unknown]

NARRATIVE: CASE EVENT DATE: 20160410
